FAERS Safety Report 7205304-5 (Version None)
Quarter: 2010Q4

REPORT INFORMATION
  Report Type: 
  Country: None (occurrence: None)
  Receive Date: 20101231
  Receipt Date: 20101221
  Transmission Date: 20110411
  Serious: No
  Sender: FDA-Public Use
  Company Number: US-BIOGENIDEC-2010BI044993

PATIENT
  Age: 40 Year
  Sex: Female

DRUGS (1)
  1. AVONEX [Suspect]
     Indication: MULTIPLE SCLEROSIS
     Route: 030
     Dates: start: 20091117, end: 20100630

REACTIONS (4)
  - COORDINATION ABNORMAL [None]
  - HYPOAESTHESIA [None]
  - MUSCLE SPASMS [None]
  - MUSCULAR WEAKNESS [None]
